FAERS Safety Report 17657870 (Version 5)
Quarter: 2022Q1

REPORT INFORMATION
  Report Type: Report from Study
  Country: US (occurrence: US)
  Receive Date: 20200411
  Receipt Date: 20220105
  Transmission Date: 20220424
  Serious: Yes (Other)
  Sender: FDA-Public Use
  Company Number: None

PATIENT
  Sex: Female
  Weight: 68.95 kg

DRUGS (5)
  1. MAYZENT [Suspect]
     Active Substance: SIPONIMOD
     Indication: Multiple sclerosis
     Dosage: 1 MG, QD (TABLET)
     Route: 048
     Dates: start: 20200328
  2. MAYZENT [Suspect]
     Active Substance: SIPONIMOD
     Dosage: 1 MG/KG
     Route: 048
     Dates: start: 20190328
  3. MAYZENT [Suspect]
     Active Substance: SIPONIMOD
     Dosage: 1 MG
     Route: 048
     Dates: start: 20211216
  4. MAYZENT [Suspect]
     Active Substance: SIPONIMOD
     Dosage: 2 MG, QD
     Route: 048
  5. PREDNISONE [Concomitant]
     Active Substance: PREDNISONE
     Indication: Product used for unknown indication
     Route: 065

REACTIONS (13)
  - Multiple sclerosis relapse [Unknown]
  - Erythema [Unknown]
  - Cough [Unknown]
  - Sneezing [Unknown]
  - Hypersensitivity [Unknown]
  - Nasopharyngitis [Unknown]
  - Oropharyngeal pain [Unknown]
  - Muscular weakness [Unknown]
  - Pyrexia [Unknown]
  - Pruritus [Unknown]
  - Fall [Unknown]
  - Peripheral swelling [Unknown]
  - Gait disturbance [Unknown]
